FAERS Safety Report 7469873-2 (Version None)
Quarter: 2011Q2

REPORT INFORMATION
  Report Type: 
  Country: None (occurrence: None)
  Receive Date: 20110510
  Receipt Date: 20110503
  Transmission Date: 20111010
  Serious: Yes (Other)
  Sender: FDA-Public Use
  Company Number: US-ROCHE-590156

PATIENT
  Sex: Female
  Weight: 81.2 kg

DRUGS (19)
  1. METHOTREXATE [Concomitant]
     Route: 048
  2. VASOTEC [Concomitant]
     Dates: start: 20030101
  3. HYDROCHLOROTHIAZIDE [Concomitant]
     Dates: start: 20070206
  4. ACTEMRA [Suspect]
     Route: 042
     Dates: start: 20080527
  5. ACTEMRA [Suspect]
     Route: 042
     Dates: start: 20080715
  6. TOPROL-XL [Concomitant]
     Dates: start: 20030101
  7. VITAMIN D [Concomitant]
     Dosage: TDD REPORTED AS 50,000 UNITS.
     Dates: start: 20080105
  8. ZETIA [Concomitant]
     Dates: start: 20070912
  9. ACTEMRA [Suspect]
     Dosage: THERAPY TEMPORARILY INTERRUPTED.
     Route: 042
     Dates: end: 20080912
  10. ACTEMRA [Suspect]
     Dosage: FORM: INFUSION. PATIENT WAS PREVIOSLY ENROLLED IN WA18062 STUDY.
     Route: 042
  11. PROCARDIN(DIPYRIDAMOLE) [Concomitant]
     Dosage: DRUG NAME REPORTED AS PROCARDIL XL.
     Dates: start: 20080108
  12. LOTREL [Concomitant]
     Dates: start: 20080623
  13. ACTEMRA [Suspect]
     Route: 042
     Dates: start: 20080619
  14. ACTEMRA [Suspect]
     Route: 042
     Dates: start: 20080814
  15. CALCIUM [Concomitant]
     Dates: start: 20050411
  16. ACTEMRA [Suspect]
     Indication: RHEUMATOID ARTHRITIS
     Dosage: DOSAGE FORM REPORTED AS VIAL.
     Route: 042
     Dates: start: 20040203
  17. ACTEMRA [Suspect]
     Route: 042
     Dates: start: 20090717
  18. MULTI-VITAMIN [Concomitant]
     Dates: start: 19800101
  19. LORTAB [Concomitant]
     Dates: start: 20030612

REACTIONS (1)
  - BREAST CANCER [None]
